FAERS Safety Report 24920209 (Version 1)
Quarter: 2025Q1

REPORT INFORMATION
  Report Type: Spontaneous
  Country: US (occurrence: US)
  Receive Date: 20250204
  Receipt Date: 20250204
  Transmission Date: 20250409
  Serious: No
  Sender: DR REDDYS
  Company Number: US-DRL-USA-USA/2025/01/001218

PATIENT
  Age: 41 Year
  Sex: Male

DRUGS (1)
  1. APREMILAST [Suspect]
     Active Substance: APREMILAST
     Indication: Pruritus genital
     Dosage: 30 MG TWICE A DAY
     Route: 048

REACTIONS (3)
  - Diarrhoea [Unknown]
  - Headache [Unknown]
  - Product use in unapproved indication [Unknown]
